FAERS Safety Report 4278901-7 (Version None)
Quarter: 2004Q1

REPORT INFORMATION
  Report Type: 
  Country: None (occurrence: None)
  Receive Date: 20040122
  Receipt Date: 20040122
  Transmission Date: 20041129
  Serious: Yes (Hospitalization)
  Sender: FDA-Public Use
  Company Number: None

PATIENT
  Sex: Male

DRUGS (15)
  1. COUMADIN [Suspect]
     Indication: MITRAL VALVE REPLACEMENT
     Dosage: 2 MG DAILY ORAL
     Route: 048
     Dates: start: 20031103, end: 20031110
  2. LOVENOX [Suspect]
     Indication: MITRAL VALVE REPLACEMENT
     Dosage: 80 MG Q 12 HR SUBCUTANEOUS
     Route: 058
     Dates: start: 20031103, end: 20031110
  3. TRAZODONE HCL [Concomitant]
  4. SIMVASTATIN [Concomitant]
  5. RABEPRAZOLE SODIUM [Concomitant]
  6. PREDNISONE [Concomitant]
  7. LISINOPRIL [Concomitant]
  8. FUROSEMIDE [Concomitant]
  9. FERROUS SULFATE TAB [Concomitant]
  10. DIGOXIN [Concomitant]
  11. COMBIVENT [Concomitant]
  12. CARVEDILOL [Concomitant]
  13. CALCIUM/VITAMIN D [Concomitant]
  14. ASPIRIN [Concomitant]
  15. AMIODARONE HCL [Concomitant]

REACTIONS (3)
  - ABDOMINAL PAIN [None]
  - HAEMATOMA [None]
  - INJECTION SITE REACTION [None]
